FAERS Safety Report 8764882 (Version 2)
Quarter: 2013Q2

REPORT INFORMATION
  Report Type: Report from Study
  Country: JP (occurrence: JP)
  Receive Date: 20120901
  Receipt Date: 20130517
  Transmission Date: 20140414
  Serious: Yes (Hospitalization)
  Sender: FDA-Public Use
  Company Number: JP-009507513-1208JPN008230

PATIENT
  Age: 64 Year
  Sex: Male
  Weight: 67 kg

DRUGS (9)
  1. PEGINTRON [Suspect]
     Indication: CHRONIC HEPATITIS C
     Dosage: 1.5 MICROGRAM PER KILOGRAM, QW
     Route: 058
     Dates: start: 20120523
  2. REBETOL [Suspect]
     Indication: CHRONIC HEPATITIS C
     Dosage: 800 MG, QD
     Route: 048
     Dates: start: 20120523, end: 20120604
  3. REBETOL [Suspect]
     Dosage: 600 MG, QD
     Route: 048
     Dates: start: 20120605, end: 20120611
  4. REBETOL [Suspect]
     Dosage: 400 MG, QD
     Route: 058
     Dates: start: 20120612, end: 20120614
  5. REBETOL [Suspect]
     Dosage: 200 MG, QD
     Route: 048
     Dates: start: 20120615
  6. TELAVIC [Suspect]
     Indication: CHRONIC HEPATITIS C
     Dosage: 2250 MG, QD
     Route: 048
     Dates: start: 20120523, end: 20120525
  7. TELAVIC [Suspect]
     Dosage: 1500 MG, QD
     Route: 048
     Dates: start: 20120605, end: 20120815
  8. LACTEC [Concomitant]
     Indication: RENAL DISORDER
     Dosage: 500 ML, QD
     Route: 042
     Dates: start: 20120525, end: 20120527
  9. RINDERON-VG [Concomitant]
     Indication: SKIN DISORDER
     Dosage: Q.S, DAILY DOSE UNKNOWN
     Route: 051
     Dates: start: 20120531, end: 20120603

REACTIONS (3)
  - Renal impairment [Recovered/Resolved]
  - Haemoglobin decreased [Not Recovered/Not Resolved]
  - Haemoglobin decreased [Not Recovered/Not Resolved]
